FAERS Safety Report 5310225-9 (Version None)
Quarter: 2007Q2

REPORT INFORMATION
  Report Type: 
  Country: None (occurrence: None)
  Receive Date: 20070427
  Receipt Date: 20070419
  Transmission Date: 20071010
  Serious: Yes (Other)
  Sender: FDA-Public Use
  Company Number: JP-ROCHE-489114

PATIENT
  Age: 8 Year
  Sex: Male

DRUGS (5)
  1. TAMIFLU [Suspect]
     Indication: INFLUENZA
     Dosage: FORM: DRY SYRUP.
     Route: 048
     Dates: start: 20070309, end: 20070309
  2. PERIACTIN [Concomitant]
     Route: 048
  3. MUCOSOLVAN [Concomitant]
     Route: 048
  4. COLDRIN [Concomitant]
     Route: 048
  5. LOXONIN [Concomitant]
     Dosage: 30 MG DAILY TAKEN AS NEEDED.
     Route: 048

REACTIONS (1)
  - DELIRIUM [None]
